FAERS Safety Report 8622648 (Version 4)
Quarter: 2012Q4

REPORT INFORMATION
  Report Type: 
  Country: US (occurrence: US)
  Receive Date: 20120619
  Receipt Date: 20121115
  Transmission Date: 20130627
  Serious: Yes (Hospitalization)
  Sender: FDA-Public Use
  Company Number: US-JNJFOC-20120606087

PATIENT
  Sex: Female
  Weight: 68.04 kg

DRUGS (7)
  1. EXTRA STRENGTH TYLENOL RAPID RELEASE GELCAPS [Suspect]
     Indication: BACK PAIN
     Route: 048
     Dates: start: 201005
  2. EXTRA STRENGTH TYLENOL RAPID RELEASE GELCAPS [Suspect]
     Indication: CHILLS
     Route: 048
     Dates: start: 201005
  3. EXTRA STRENGTH TYLENOL RAPID RELEASE GELCAPS [Suspect]
     Indication: PYREXIA
     Route: 048
     Dates: start: 201005
  4. TYLENOL [Suspect]
     Indication: BACK PAIN
     Route: 048
     Dates: start: 201005
  5. TYLENOL [Suspect]
     Indication: CHILLS
     Route: 048
     Dates: start: 201005
  6. TYLENOL [Suspect]
     Indication: PYREXIA
     Route: 048
     Dates: start: 201005
  7. ALCOHOL [Suspect]
     Indication: PRODUCT USED FOR UNKNOWN INDICATION
     Route: 065

REACTIONS (5)
  - Acute hepatic failure [Recovering/Resolving]
  - Renal failure [Unknown]
  - Toxicity to various agents [Recovering/Resolving]
  - Urinary tract infection [Unknown]
  - Accidental overdose [Unknown]
